FAERS Safety Report 11222759 (Version 1)
Quarter: 2015Q2

REPORT INFORMATION
  Report Type: Spontaneous
  Country: US (occurrence: US)
  Receive Date: 20150626
  Receipt Date: 20150626
  Transmission Date: 20150821
  Serious: Yes (Hospitalization)
  Sender: FDA-Public Use
  Company Number: US-BAYER-2015-362719

PATIENT
  Age: 77 Year
  Sex: Female

DRUGS (2)
  1. ADVIL [Suspect]
     Active Substance: IBUPROFEN
     Indication: PAIN
     Dosage: AS NEEDED
     Route: 048
  2. ALEVE [Suspect]
     Active Substance: NAPROXEN SODIUM
     Indication: PAIN
     Dosage: AS NEEDED

REACTIONS (6)
  - Drug hypersensitivity [None]
  - Vomiting [Unknown]
  - Dizziness [Unknown]
  - Vertigo [Unknown]
  - Arthralgia [Unknown]
  - Nausea [None]
